FAERS Safety Report 8177938-5 (Version None)
Quarter: 2012Q1

REPORT INFORMATION
  Report Type: 
  Country: None (occurrence: None)
  Receive Date: 20120130
  Receipt Date: 20110511
  Transmission Date: 20120608
  Serious: Yes (Other)
  Sender: FDA-Public Use
  Company Number: 031240

PATIENT
  Age: 17 Year
  Sex: Male

DRUGS (3)
  1. KEPPRA [Suspect]
     Indication: GRAND MAL CONVULSION
     Dosage: (250 MG BID ORAL) ; (500 MG BID ORAL)
     Route: 048
     Dates: start: 20101121, end: 20101101
  2. KEPPRA [Suspect]
     Indication: GRAND MAL CONVULSION
     Dosage: (250 MG BID ORAL) ; (500 MG BID ORAL)
     Route: 048
     Dates: start: 20101101, end: 20101125
  3. CHLORPROMAZINE HCL [Concomitant]

REACTIONS (1)
  - PANCREATITIS ACUTE [None]
